FAERS Safety Report 4885955-3 (Version None)
Quarter: 2006Q1

REPORT INFORMATION
  Report Type: 
  Country: None (occurrence: None)
  Receive Date: 20060117
  Receipt Date: 20060110
  Transmission Date: 20060701
  Serious: Yes (Death)
  Sender: FDA-Public Use
  Company Number: 2006JP000053

PATIENT
  Age: 74 Year
  Sex: Female

DRUGS (5)
  1. PROGRAF [Suspect]
     Indication: RHEUMATOID ARTHRITIS
     Dosage: 1.5 MG, ORAL
     Route: 048
     Dates: start: 20051129, end: 20060108
  2. AMLODIPINE BESYLATE [Concomitant]
  3. FOSAMAC (ALENDRONATE SODIUM) [Concomitant]
  4. ALFAROL (ALFACALCIDOL) [Concomitant]
  5. LOXONIN (LOXOPROFEN SODIUM) [Concomitant]

REACTIONS (2)
  - ASPIRATION [None]
  - INJURY ASPHYXIATION [None]
